FAERS Safety Report 8171040 (Version 2)
Quarter: 2012Q4

REPORT INFORMATION
  Report Type: 
  Country: DE (occurrence: DE)
  Receive Date: 20111006
  Receipt Date: 20120927
  Transmission Date: 20130627
  Serious: Yes (Other)
  Sender: FDA-Public Use
  Company Number: DE-GENZYME-CAMP-1001916

PATIENT
  Age: 68 Year
  Sex: Female
  Weight: 90.1 kg

DRUGS (2)
  1. CAMPATH [Suspect]
     Indication: T-CELL PROLYMPHOCYTIC LEUKAEMIA
     Dosage: 30 mg qd, cycle 1
     Route: 058
     Dates: start: 20110616
  2. CAMPATH [Suspect]
     Dosage: 30 mg, qd
     Route: 058
     Dates: end: 20110905

REACTIONS (1)
  - Oesophagitis [Recovered/Resolved]
